FAERS Safety Report 9257879 (Version 1)
Quarter: 2013Q2

REPORT INFORMATION
  Report Type: Spontaneous
  Country: US (occurrence: US)
  Receive Date: 20130426
  Receipt Date: 20130426
  Transmission Date: 20140414
  Serious: Yes (Hospitalization, Other)
  Sender: FDA-Public Use
  Company Number: US-NOVOPROD-376303

PATIENT
  Age: 68 Year
  Sex: Female

DRUGS (1)
  1. NORDITROPIN FLEXPRO 3.3 MG/ML [Suspect]
     Indication: HYPOPITUITARISM
     Dosage: 0.4 MG, QD
     Route: 058
     Dates: start: 20110927

REACTIONS (3)
  - Knee arthroplasty [Unknown]
  - Pain [Unknown]
  - Pain [Unknown]
